FAERS Safety Report 22271466 (Version 1)
Quarter: 2023Q2

REPORT INFORMATION
  Report Type: Spontaneous
  Country: AU (occurrence: AU)
  Receive Date: 20230501
  Receipt Date: 20230501
  Transmission Date: 20230722
  Serious: Yes (Hospitalization)
  Sender: FDA-Public Use
  Company Number: AU-STRIDES ARCOLAB LIMITED-2023SP006301

PATIENT
  Age: 61 Year
  Sex: Male

DRUGS (4)
  1. PREDNISOLONE [Suspect]
     Active Substance: PREDNISOLONE
     Indication: Sarcomatoid carcinoma of the lung
     Dosage: 2.5 MILLIGRAM, PER DAY
     Route: 065
  2. PREDNISOLONE [Suspect]
     Active Substance: PREDNISOLONE
     Indication: Sarcomatoid mesothelioma
  3. NIVOLUMAB [Suspect]
     Active Substance: NIVOLUMAB
     Indication: Sarcomatoid carcinoma of the lung
     Dosage: UNK, EVERY 2 WEEKS
     Route: 065
  4. NIVOLUMAB [Suspect]
     Active Substance: NIVOLUMAB
     Indication: Sarcomatoid mesothelioma

REACTIONS (1)
  - Autoimmune pancreatitis [Recovered/Resolved]
